FAERS Safety Report 8443704-6 (Version None)
Quarter: 2012Q2

REPORT INFORMATION
  Report Type: 
  Country: None (occurrence: None)
  Receive Date: 20120618
  Receipt Date: 20120611
  Transmission Date: 20120825
  Serious: Yes (Other)
  Sender: FDA-Public Use
  Company Number: US-BAYER-201033419NA

PATIENT
  Age: 35 Year
  Sex: Female
  Weight: 96.599 kg

DRUGS (1)
  1. MIRENA [Suspect]
     Indication: CONTRACEPTION
     Dosage: 20 ?G/D, CONT
     Route: 015
     Dates: start: 20081022, end: 20100219

REACTIONS (10)
  - PREMATURE MENOPAUSE [None]
  - HYPOMENORRHOEA [None]
  - MENOPAUSAL DEPRESSION [None]
  - NAUSEA [None]
  - AMENORRHOEA [None]
  - NIGHT SWEATS [None]
  - ANXIETY [None]
  - ABDOMINAL DISTENSION [None]
  - VAGINITIS BACTERIAL [None]
  - HOT FLUSH [None]
